FAERS Safety Report 13509916 (Version 1)
Quarter: 2017Q2

REPORT INFORMATION
  Report Type: Spontaneous
  Country: US (occurrence: US)
  Receive Date: 20170503
  Receipt Date: 20170503
  Transmission Date: 20170830
  Serious: No
  Sender: FDA-Public Use
  Company Number: US-SA-2017SA051822

PATIENT
  Sex: Female

DRUGS (7)
  1. AMOXICILLIN. [Concomitant]
     Active Substance: AMOXICILLIN
     Dosage: STRENGTH; 500MG
  2. ALIROCUMAB PREFILLED PEN [Concomitant]
     Active Substance: ALIROCUMAB
     Dates: start: 20161230
  3. PRALUENT [Suspect]
     Active Substance: ALIROCUMAB
     Route: 058
     Dates: start: 20161230
  4. VENTOLIN [Concomitant]
     Active Substance: ALBUTEROL SULFATE
  5. ZETIA [Concomitant]
     Active Substance: EZETIMIBE
     Dosage: STRENGTH: 10MG
  6. ALENDRONATE [Concomitant]
     Active Substance: ALENDRONATE SODIUM
     Dosage: SRENGTH: 70MG
  7. AZITHROMYCIN ANHYDROUS. [Concomitant]
     Active Substance: AZITHROMYCIN ANHYDROUS
     Dosage: STRENGTH: 250MG

REACTIONS (1)
  - Injection site bruising [Not Recovered/Not Resolved]
